FAERS Safety Report 9025279 (Version 1)
Quarter: 2013Q1

REPORT INFORMATION
  Report Type: Report from Study
  Country: KR (occurrence: KR)
  Receive Date: 20130122
  Receipt Date: 20130122
  Transmission Date: 20140127
  Serious: No
  Sender: FDA-Public Use
  Company Number: KR-GILEAD-2013-0067991

PATIENT
  Sex: 0

DRUGS (2)
  1. ADEFOVIR DIPIVOXIL [Suspect]
     Indication: CHRONIC HEPATITIS B
  2. LAMIVUDINE [Suspect]
     Indication: CHRONIC HEPATITIS B

REACTIONS (1)
  - No adverse event [Unknown]
